FAERS Safety Report 12569015 (Version 1)
Quarter: 2016Q3

REPORT INFORMATION
  Report Type: Spontaneous
  Country: US (occurrence: US)
  Receive Date: 20160719
  Receipt Date: 20160719
  Transmission Date: 20161109
  Serious: Yes (Other)
  Sender: FDA-Public Use
  Company Number: US-TEVA-678431USA

PATIENT
  Age: 36 Year
  Sex: Female

DRUGS (3)
  1. HYDROFLUMETHIAZIDE [Suspect]
     Active Substance: HYDROFLUMETHIAZIDE
  2. HYDROCHLOROTHIAZIDE. [Suspect]
     Active Substance: HYDROCHLOROTHIAZIDE
     Route: 065
  3. POTASSIUM [Concomitant]
     Active Substance: POTASSIUM
     Indication: SUPPLEMENTATION THERAPY

REACTIONS (2)
  - Drug abuse [Unknown]
  - Hypokalaemia [Unknown]
